FAERS Safety Report 13177662 (Version 2)
Quarter: 2017Q1

REPORT INFORMATION
  Report Type: Spontaneous
  Country: JP (occurrence: JP)
  Receive Date: 20170201
  Receipt Date: 20170210
  Transmission Date: 20170428
  Serious: Yes (Death)
  Sender: FDA-Public Use
  Company Number: JP-BAXTER-2017BAX004625

PATIENT
  Sex: Male
  Weight: 50 kg

DRUGS (1)
  1. REGUNEAL LCA 2.5 PERITONEAL DIALYSIS SOLUTION [Suspect]
     Active Substance: CALCIUM CHLORIDE\DEXTROSE MONOHYDRATE\HYDROCHLORIC ACID\MAGNESIUM CHLORIDE\SODIUM BICARBONATE\SODIUM CHLORIDE\SODIUM HYDROXIDE\SODIUM LACTATE
     Indication: CHRONIC KIDNEY DISEASE
     Route: 033
     Dates: start: 201510

REACTIONS (7)
  - Immunodeficiency [Unknown]
  - Fall [Unknown]
  - Feeding disorder [Unknown]
  - Asthenia [Unknown]
  - Osteomyelitis chronic [Fatal]
  - General physical health deterioration [Unknown]
  - Fracture [Unknown]
